FAERS Safety Report 14631609 (Version 2)
Quarter: 2020Q1

REPORT INFORMATION
  Report Type: Spontaneous
  Country: AU (occurrence: AU)
  Receive Date: 20180313
  Receipt Date: 20200124
  Transmission Date: 20200409
  Serious: Yes (Hospitalization)
  Sender: FDA-Public Use
  Company Number: AU-MYLANLABS-2018M1015325

PATIENT
  Age: 67 Year
  Sex: Female

DRUGS (2)
  1. METHOTREXATE. [Suspect]
     Active Substance: METHOTREXATE
     Indication: METASTASES TO MENINGES
     Dosage: 12MG THROUGH AN OMMAYA RESERVOIR 5TH INSTILLATION
     Route: 037
  2. METHOTREXATE. [Suspect]
     Active Substance: METHOTREXATE
     Indication: BREAST CANCER
     Dosage: 45MG TOTAL ADMINISTERED DURING PAST 4 INSTILLATION
     Route: 037

REACTIONS (2)
  - Leukoencephalopathy [Recovering/Resolving]
  - Device malfunction [Unknown]
